FAERS Safety Report 6449160-1 (Version None)
Quarter: 2009Q4

REPORT INFORMATION
  Report Type: 
  Country: None (occurrence: None)
  Receive Date: 20091120
  Receipt Date: 20091117
  Transmission Date: 20100525
  Serious: Yes (Hospitalization)
  Sender: FDA-Public Use
  Company Number: US-MERCK-0911USA02792

PATIENT
  Age: 64 Year
  Sex: Male

DRUGS (1)
  1. ZETIA [Suspect]
     Indication: BLOOD CHOLESTEROL
     Route: 048

REACTIONS (3)
  - COLD SWEAT [None]
  - MYOCARDIAL INFARCTION [None]
  - PAIN [None]
